FAERS Safety Report 7659570 (Version 4)
Quarter: 2012Q4

REPORT INFORMATION
  Report Type: 
  Country: US (occurrence: US)
  Receive Date: 20101108
  Receipt Date: 20121220
  Transmission Date: 20130627
  Serious: Yes (Hospitalization, Other)
  Sender: FDA-Public Use
  Company Number: US-US-EMD SERONO, INC.-7024310

PATIENT
  Age: 46 None
  Sex: Female
  Weight: 90 kg

DRUGS (21)
  1. REBIF [Suspect]
     Indication: RELAPSING-REMITTING MULTIPLE SCLEROSIS
     Route: 058
     Dates: start: 20071008, end: 20101031
  2. REBIF [Suspect]
     Route: 058
     Dates: start: 20110602, end: 20120910
  3. CYCLOPHOSPHAMIDE [Concomitant]
     Indication: MULTIPLE SCLEROSIS
     Dates: start: 200704
  4. METHYLPREDNISOLONE [Concomitant]
     Indication: MULTIPLE SCLEROSIS
     Route: 042
  5. B12 [Concomitant]
     Indication: PRODUCT USED FOR UNKNOWN INDICATION
  6. CELLCEPT [Concomitant]
     Indication: PRODUCT USED FOR UNKNOWN INDICATION
  7. IMMUNOGLOBULIN [Concomitant]
     Indication: PRODUCT USED FOR UNKNOWN INDICATION
     Route: 042
  8. CELEXA [Concomitant]
     Indication: PRODUCT USED FOR UNKNOWN INDICATION
     Route: 048
  9. CEPHALEXIN [Concomitant]
     Indication: PRODUCT USED FOR UNKNOWN INDICATION
     Route: 048
  10. DIAZEPAM [Concomitant]
     Indication: PRODUCT USED FOR UNKNOWN INDICATION
     Route: 048
  11. DILAUDID [Concomitant]
     Indication: PRODUCT USED FOR UNKNOWN INDICATION
     Route: 048
  12. ESTRADIOL [Concomitant]
     Indication: PRODUCT USED FOR UNKNOWN INDICATION
     Route: 048
  13. FENTANYL [Concomitant]
     Indication: PRODUCT USED FOR UNKNOWN INDICATION
     Route: 062
  14. GABAPENTIN [Concomitant]
     Indication: PRODUCT USED FOR UNKNOWN INDICATION
     Route: 048
  15. HYDROCODONE AND IBUPROFEN [Concomitant]
     Indication: PRODUCT USED FOR UNKNOWN INDICATION
     Dosage: 7.5/200mg
     Route: 048
  16. LOVENOX [Concomitant]
     Indication: PRODUCT USED FOR UNKNOWN INDICATION
     Route: 058
  17. MULTIVITAMIN [Concomitant]
     Indication: PRODUCT USED FOR UNKNOWN INDICATION
     Route: 048
  18. NORTRIPTYLINE [Concomitant]
     Indication: PRODUCT USED FOR UNKNOWN INDICATION
     Route: 048
  19. RANITIDINE [Concomitant]
     Indication: PRODUCT USED FOR UNKNOWN INDICATION
  20. TOPROL XL [Concomitant]
     Indication: PRODUCT USED FOR UNKNOWN INDICATION
     Route: 048
  21. TRAMADOL [Concomitant]
     Indication: PRODUCT USED FOR UNKNOWN INDICATION
     Route: 048

REACTIONS (21)
  - Breast cancer stage I [Not Recovered/Not Resolved]
  - Abdominal wound dehiscence [Unknown]
  - Impaired healing [Not Recovered/Not Resolved]
  - Endometriosis [Recovering/Resolving]
  - Post procedural infection [Recovered/Resolved]
  - Pneumonia [Unknown]
  - Pulmonary thrombosis [Unknown]
  - Staphylococcal infection [Unknown]
  - Urinary tract infection [Unknown]
  - Hypersensitivity [Unknown]
  - Breast calcifications [Unknown]
  - Drug hypersensitivity [Unknown]
  - Injection site rash [Not Recovered/Not Resolved]
  - Injection site induration [Recovered/Resolved]
  - Pyrexia [Unknown]
  - Pain [Unknown]
  - Injection site erythema [Unknown]
  - Injection site mass [Not Recovered/Not Resolved]
  - Injection site atrophy [Not Recovered/Not Resolved]
  - Injection site pustule [Not Recovered/Not Resolved]
  - Injection site bruising [Not Recovered/Not Resolved]
